FAERS Safety Report 7621611-6 (Version None)
Quarter: 2011Q3

REPORT INFORMATION
  Report Type: 
  Country: None (occurrence: None)
  Receive Date: 20110719
  Receipt Date: 20080801
  Transmission Date: 20111222
  Serious: Yes (Disabling, Other)
  Sender: FDA-Public Use
  Company Number: US-BAYER-200830239NA

PATIENT
  Age: 60 Year
  Sex: Male
  Weight: 89.342 kg

DRUGS (37)
  1. MAGNEVIST [Suspect]
     Dosage: 60ML
     Dates: start: 20030912, end: 20030912
  2. MAGNEVIST [Suspect]
     Dosage: UNK, ONCE
     Dates: start: 20031117, end: 20031117
  3. MAGNEVIST [Suspect]
     Dosage: UNK, ONCE
     Dates: start: 20060314, end: 20060314
  4. MAGNEVIST [Suspect]
     Dosage: UNK
     Dates: start: 20060912, end: 20060912
  5. WARFARIN SODIUM [Concomitant]
  6. MAGNEVIST [Suspect]
     Dosage: UNK, ONCE
     Dates: start: 20050913, end: 20050913
  7. MAGNEVIST [Suspect]
     Dosage: 30ML
     Route: 042
     Dates: start: 20061128, end: 20061128
  8. GADOLINIUM IN UNSPECIFIED DRUG [Suspect]
     Indication: NUCLEAR MAGNETIC RESONANCE IMAGING BRAIN
     Dosage: UNK UNK, BID
     Dates: start: 19950323, end: 19950323
  9. LABETALOL HCL [Concomitant]
  10. NORVASC [Concomitant]
  11. ALLOPURINOL [Concomitant]
  12. CALCIUM CARBONATE [Concomitant]
  13. PHOSLO [Concomitant]
  14. MAGNEVIST [Suspect]
     Indication: ANGIOGRAM
     Dosage: UNK, ONCE
     Dates: start: 20021213, end: 20021213
  15. MAGNEVIST [Suspect]
     Dosage: UNK
     Dates: start: 20030522, end: 20030522
  16. MAGNEVIST [Suspect]
     Dosage: 60ML
     Dates: start: 20031010, end: 20031010
  17. GADOLINIUM IN UNSPECIFIED DRUG [Suspect]
     Indication: NUCLEAR MAGNETIC RESONANCE IMAGING
     Dosage: UNK, ONCE
     Dates: start: 20020226, end: 20020226
  18. GADOLINIUM IN UNSPECIFIED DRUG [Suspect]
  19. GLEEVEC [Concomitant]
  20. LORAZEPAM [Concomitant]
  21. MAGNEVIST [Suspect]
     Indication: NUCLEAR MAGNETIC RESONANCE IMAGING
     Dosage: 36ML
     Dates: start: 20010529, end: 20010529
  22. MAGNEVIST [Suspect]
     Dosage: UNK, ONCE
     Dates: start: 20030305, end: 20030305
  23. MAGNEVIST [Suspect]
     Dosage: UNK, ONCE
     Dates: start: 20050315, end: 20050315
  24. NEPHROCAPS [Concomitant]
  25. ARANESP [Concomitant]
  26. FUROSEMIDE [Concomitant]
  27. RENAGEL [Concomitant]
  28. LIPITOR [Concomitant]
  29. CLONIDINE [Concomitant]
  30. MAGNEVIST [Suspect]
     Dosage: UNK, ONCE
     Dates: start: 20040226, end: 20040226
  31. FOSINOPRIL SODIUM [Concomitant]
  32. GLYBURIDE [Concomitant]
  33. MAGNEVIST [Suspect]
     Dosage: UNK, ONCE
     Dates: start: 20021113, end: 20021113
  34. MAGNEVIST [Suspect]
     Dosage: UNK, ONCE
     Dates: start: 20030828, end: 20030828
  35. MAGNEVIST [Suspect]
     Dosage: UNK, ONCE
     Dates: start: 20040914, end: 20040914
  36. GADOLINIUM IN UNSPECIFIED DRUG [Suspect]
     Dosage: UNK, ONCE
     Dates: start: 20020416, end: 20020416
  37. FERROUS SULFATE TAB [Concomitant]

REACTIONS (18)
  - GENERAL PHYSICAL HEALTH DETERIORATION [None]
  - SCAR [None]
  - SKIN INDURATION [None]
  - JOINT CONTRACTURE [None]
  - SKIN FIBROSIS [None]
  - MOBILITY DECREASED [None]
  - WALKING AID USER [None]
  - NEPHROGENIC SYSTEMIC FIBROSIS [None]
  - FIBROSIS [None]
  - INJURY [None]
  - ANXIETY [None]
  - PEAU D'ORANGE [None]
  - GAIT DISTURBANCE [None]
  - PAIN [None]
  - EMOTIONAL DISTRESS [None]
  - SCLERAL PIGMENTATION [None]
  - QUALITY OF LIFE DECREASED [None]
  - MYOSCLEROSIS [None]
